FAERS Safety Report 4691117-5 (Version None)
Quarter: 2005Q2

REPORT INFORMATION
  Report Type: 
  Country: None (occurrence: None)
  Receive Date: 20050610
  Receipt Date: 20050527
  Transmission Date: 20051028
  Serious: Yes (Hospitalization)
  Sender: FDA-Public Use
  Company Number: SUS1-2005-00322

PATIENT
  Age: 20 Year
  Sex: Male

DRUGS (5)
  1. PENTASA [Suspect]
     Indication: COLITIS ULCERATIVE
     Dosage: 2250 MG/DAY, ORAL
     Route: 048
     Dates: start: 20050310, end: 20050330
  2. BETAMETHASONE [Suspect]
     Indication: COLITIS ULCERATIVE
     Dosage: 1 G, DAILY, RECTAL
     Route: 054
     Dates: start: 20041201, end: 20050330
  3. SULFASALAZINE [Suspect]
     Indication: COLITIS ULCERATIVE
     Dosage: SEE IMAGE
     Route: 054
     Dates: start: 20041201, end: 20050309
  4. SULFASALAZINE [Suspect]
     Indication: COLITIS ULCERATIVE
     Dosage: SEE IMAGE
     Route: 054
     Dates: start: 20050301, end: 20050309
  5. LACTOMIN                     (LACTOMIN) [Concomitant]

REACTIONS (5)
  - COLITIS ULCERATIVE [None]
  - DISEASE RECURRENCE [None]
  - OEDEMA PERIPHERAL [None]
  - STOMATITIS [None]
  - TENDERNESS [None]
